FAERS Safety Report 7861680-1 (Version None)
Quarter: 2011Q4

REPORT INFORMATION
  Report Type: 
  Country: None (occurrence: None)
  Receive Date: 20111027
  Receipt Date: 20111019
  Transmission Date: 20120403
  Serious: Yes (Other)
  Sender: FDA-Public Use
  Company Number: US-US-EMD SERONO, INC.-7071104

PATIENT
  Sex: Female

DRUGS (2)
  1. REBIF [Suspect]
     Indication: MULTIPLE SCLEROSIS
     Route: 058
     Dates: start: 20061207
  2. IBUPROFEN [Concomitant]
     Indication: PREMEDICATION

REACTIONS (12)
  - MENSTRUATION IRREGULAR [None]
  - CHRONIC SINUSITIS [None]
  - MUSCLE SPASTICITY [None]
  - DRUG INTOLERANCE [None]
  - INCORRECT DOSE ADMINISTERED [None]
  - MULTIPLE SCLEROSIS [None]
  - HYPERSENSITIVITY [None]
  - IRRITABLE BOWEL SYNDROME [None]
  - INJECTION SITE PAIN [None]
  - RHINITIS [None]
  - MALAISE [None]
  - INJECTION SITE INDURATION [None]
